FAERS Safety Report 5213295-1 (Version None)
Quarter: 2007Q1

REPORT INFORMATION
  Report Type: 
  Country: None (occurrence: None)
  Receive Date: 20070118
  Receipt Date: 20070118
  Transmission Date: 20070707
  Serious: Yes (Other)
  Sender: FDA-Public Use
  Company Number: None

PATIENT
  Sex: Male

DRUGS (29)
  1. ROSUVASTATIN   20 MG [Suspect]
     Indication: HYPERLIPIDAEMIA
     Dosage: 10 MG  DAILY  PO
     Route: 048
  2. AUGMENTIN '125' [Concomitant]
  3. ASCORBIC ACID [Concomitant]
  4. ASPIRIN [Concomitant]
  5. CALCIUM GLUCONATE [Concomitant]
  6. CITALOPRAM HYDROBROMIDE [Concomitant]
  7. CLORAZEPATE [Concomitant]
  8. DILTIAZEM HCL [Concomitant]
  9. DOCUSATE [Concomitant]
  10. ETODOLAC [Concomitant]
  11. FERROUS SULFATE TAB [Concomitant]
  12. FOLIC ACID [Concomitant]
  13. FORMOTEROL FUMARATE [Concomitant]
  14. GEMFIBROZIL [Concomitant]
  15. HYDROCHLOROTHIAZIDE [Concomitant]
  16. IPRATROPIUM BROMIDE [Concomitant]
  17. LISINOPRIL [Concomitant]
  18. MECLIZINE [Concomitant]
  19. METFORMIN HCL [Concomitant]
  20. METOPROLOL SUCCINATE [Concomitant]
  21. MOMETASONE FUROATE [Concomitant]
  22. MULTIVITAMIN WITH MINERALS [Concomitant]
  23. OMEPRAZOLE [Concomitant]
  24. POTASSIUM CHLORIDE [Concomitant]
  25. TRAZODONE HCL [Concomitant]
  26. VARDENAFIL [Concomitant]
  27. VENLAFAXINE HCL [Concomitant]
  28. VIT B COMPLEX [Concomitant]
  29. VIT D [Concomitant]

REACTIONS (1)
  - MYALGIA [None]
